FAERS Safety Report 8605904-1 (Version None)
Quarter: 2012Q3

REPORT INFORMATION
  Report Type: 
  Country: None (occurrence: None)
  Receive Date: 20120820
  Receipt Date: 20120815
  Transmission Date: 20120928
  Serious: Yes (Other)
  Sender: FDA-Public Use
  Company Number: JP-GLAXOSMITHKLINE-B0823412A

PATIENT

DRUGS (1)
  1. ZANTAC [Suspect]
     Indication: PREMEDICATION
     Route: 042

REACTIONS (3)
  - DYSPNOEA [None]
  - SHOCK [None]
  - BLOOD PRESSURE DECREASED [None]
